FAERS Safety Report 4774911-1 (Version None)
Quarter: 2005Q3

REPORT INFORMATION
  Report Type: 
  Country: None (occurrence: None)
  Receive Date: 20050921
  Receipt Date: 20050909
  Transmission Date: 20060218
  Serious: Yes (Other)
  Sender: FDA-Public Use
  Company Number: MY-BRISTOL-MYERS SQUIBB COMPANY-13105606

PATIENT
  Age: 22 Year
  Sex: Female

DRUGS (3)
  1. MAXIPIME [Suspect]
     Indication: PROPHYLAXIS
     Route: 042
  2. METHYLPREDNISOLONE [Concomitant]
  3. PREDNISOLONE [Concomitant]

REACTIONS (4)
  - ANAPHYLACTIC SHOCK [None]
  - DYSPNOEA [None]
  - HYPOTENSION [None]
  - URTICARIA [None]
